FAERS Safety Report 6573686-3 (Version None)
Quarter: 2010Q1

REPORT INFORMATION
  Report Type: 
  Country: None (occurrence: None)
  Receive Date: 20100208
  Receipt Date: 20100203
  Transmission Date: 20100710
  Serious: Yes (Other)
  Sender: FDA-Public Use
  Company Number: A0842737A

PATIENT
  Age: 31 Year
  Sex: Male

DRUGS (1)
  1. ALLI [Suspect]
     Indication: WEIGHT LOSS DIET
     Route: 048
     Dates: start: 20100124, end: 20100131

REACTIONS (4)
  - DEFAECATION URGENCY [None]
  - GASTROENTERITIS VIRAL [None]
  - MALAISE [None]
  - NAUSEA [None]
